FAERS Safety Report 8323295-0 (Version None)
Quarter: 2012Q2

REPORT INFORMATION
  Report Type: 
  Country: None (occurrence: None)
  Receive Date: 20120430
  Receipt Date: 20120419
  Transmission Date: 20120825
  Serious: Yes (Death, Other)
  Sender: FDA-Public Use
  Company Number: JP-BAXTER-2012BAX000261

PATIENT
  Age: 90 Year
  Sex: Female

DRUGS (2)
  1. EXTRANEAL [Suspect]
     Indication: RENAL FAILURE CHRONIC
     Route: 033
  2. DIANEAL-N PD-4 2.5 PD SOLUTION [Suspect]
     Route: 033

REACTIONS (6)
  - MARASMUS [None]
  - BLOOD PRESSURE DECREASED [None]
  - IMMUNODEFICIENCY [None]
  - BODY TEMPERATURE DECREASED [None]
  - ASTHENIA [None]
  - INFLAMMATION [None]
